FAERS Safety Report 7447812-8 (Version None)
Quarter: 2011Q2

REPORT INFORMATION
  Report Type: 
  Country: None (occurrence: None)
  Receive Date: 20110429
  Receipt Date: 20110420
  Transmission Date: 20111010
  Serious: Yes (Hospitalization)
  Sender: FDA-Public Use
  Company Number: FR-ASTRAZENECA-2011SE23054

PATIENT
  Age: 81 Year
  Sex: Female

DRUGS (8)
  1. TRIATEC [Suspect]
     Route: 048
  2. VENTOLIN [Suspect]
     Route: 055
  3. LASILIX [Suspect]
     Route: 048
  4. PULMICORT [Suspect]
     Route: 055
  5. DILTIAZEM HCL [Suspect]
     Route: 048
  6. PREVISCAN [Suspect]
     Route: 048
  7. ELISOR [Suspect]
     Indication: HYPERCHOLESTEROLAEMIA
     Route: 048
  8. SOLUPRED [Suspect]
     Indication: ASTHMA
     Route: 048

REACTIONS (1)
  - PANCREATITIS [None]
